FAERS Safety Report 7649972-2 (Version None)
Quarter: 2011Q3

REPORT INFORMATION
  Report Type: 
  Country: None (occurrence: None)
  Receive Date: 20110802
  Receipt Date: 20110726
  Transmission Date: 20111222
  Serious: Yes (Other)
  Sender: FDA-Public Use
  Company Number: JP-BRISTOL-MYERS SQUIBB COMPANY-15923519

PATIENT
  Age: 86 Year
  Sex: Female

DRUGS (1)
  1. MAXIPIME [Suspect]
     Indication: CHOLECYSTITIS
     Route: 041
     Dates: start: 20110722

REACTIONS (2)
  - CONVULSION [None]
  - ALTERED STATE OF CONSCIOUSNESS [None]
